FAERS Safety Report 5669511-5 (Version None)
Quarter: 2008Q1

REPORT INFORMATION
  Report Type: 
  Country: None (occurrence: None)
  Receive Date: 20080317
  Receipt Date: 20080306
  Transmission Date: 20080703
  Serious: Yes (Other)
  Sender: FDA-Public Use
  Company Number: FR-ASTRAZENECA-2008CG00391

PATIENT
  Age: 66 Year
  Sex: Male
  Weight: 66 kg

DRUGS (16)
  1. PROPOFOL [Suspect]
     Indication: INDUCTION OF ANAESTHESIA
     Route: 042
  2. PROPOFOL [Suspect]
     Indication: MAINTENANCE OF ANAESTHESIA
     Route: 042
  3. PROPOFOL [Suspect]
     Route: 042
  4. PROPOFOL [Suspect]
     Route: 042
  5. PROPOFOL [Suspect]
     Route: 042
  6. PROPOFOL [Suspect]
     Route: 042
  7. LIDOCAINE [Concomitant]
     Indication: INDUCTION OF ANAESTHESIA
     Route: 042
  8. NEBIVOLOL HCL [Concomitant]
     Indication: ESSENTIAL HYPERTENSION
  9. VALSARTAN AND HYDROCHLOROTHIAZIDE [Concomitant]
     Indication: ESSENTIAL HYPERTENSION
  10. CORTICOSTEROIDS [Concomitant]
     Indication: PROPHYLAXIS
  11. REMIFENTANIL [Concomitant]
     Indication: INDUCTION OF ANAESTHESIA
     Route: 042
  12. REMIFENTANIL [Concomitant]
     Indication: MAINTENANCE OF ANAESTHESIA
     Route: 042
  13. REMIFENTANIL [Concomitant]
     Route: 042
  14. REMIFENTANIL [Concomitant]
     Route: 042
  15. ISOTONIC SALINE SERUM [Concomitant]
  16. SOLU-MEDROL [Concomitant]
     Route: 042

REACTIONS (1)
  - BLOOD LACTIC ACID INCREASED [None]
